FAERS Safety Report 14466679 (Version 1)
Quarter: 2018Q1

REPORT INFORMATION
  Report Type: Spontaneous
  Country: US (occurrence: US)
  Receive Date: 20180130
  Receipt Date: 20180130
  Transmission Date: 20180509
  Serious: Yes (Life-Threatening)
  Sender: FDA-Public Use
  Company Number: None

PATIENT
  Age: 65 Year
  Sex: Male
  Weight: 102.06 kg

DRUGS (7)
  1. INCRUSE ELLIPTA [Suspect]
     Active Substance: UMECLIDINIUM BROMIDE
     Indication: CHRONIC OBSTRUCTIVE PULMONARY DISEASE
     Dosage: DOSE - 1 PUFF
     Route: 048
  2. CRANBERRY EXTRACT [Concomitant]
     Active Substance: CRANBERRY JUICE
  3. RANITIDINE. [Concomitant]
     Active Substance: RANITIDINE
  4. KROGER MULTIVITAMIN [Concomitant]
  5. MENS HEALTH ONE A DAY [Concomitant]
  6. FRESH GINGER ROOT [Concomitant]
  7. MULTIMINERAL SUPPLEMENT [Concomitant]

REACTIONS (10)
  - Tongue discomfort [None]
  - Palpitations [None]
  - Lung disorder [None]
  - Speech disorder [None]
  - Vomiting [None]
  - Throat tightness [None]
  - Expired product administered [None]
  - Hypopnoea [None]
  - Oesophagitis [None]
  - Asphyxia [None]

NARRATIVE: CASE EVENT DATE: 20180114
